FAERS Safety Report 23898738 (Version 1)
Quarter: 2024Q2

REPORT INFORMATION
  Report Type: Other
  Country: FR (occurrence: FR)
  Receive Date: 20240525
  Receipt Date: 20240525
  Transmission Date: 20240715
  Serious: Yes (Other)
  Sender: FDA-Public Use
  Company Number: None

PATIENT

DRUGS (5)
  1. LEVETIRACETAM [Suspect]
     Active Substance: LEVETIRACETAM
     Indication: Wrong patient received product
     Dosage: 1 GRAM, 1 TOTAL
     Route: 048
     Dates: start: 20240331, end: 20240331
  2. CARBAMAZEPINE [Suspect]
     Active Substance: CARBAMAZEPINE
     Indication: Wrong patient received product
     Dosage: 400 MILLIGRAM, 1 TOTAL
     Route: 048
     Dates: start: 20240331, end: 20240331
  3. CYAMEMAZINE [Suspect]
     Active Substance: CYAMEMAZINE
     Indication: Wrong patient received product
     Dosage: 25 MILLIGRAM, 1 TOTAL
     Route: 048
     Dates: start: 20240331, end: 20240331
  4. QUETIAPINE [Suspect]
     Active Substance: QUETIAPINE
     Indication: Wrong patient received product
     Dosage: 800 MILLIGRAM, 1 TOTAL
     Route: 048
     Dates: start: 20240331, end: 20240331
  5. VALPROMIDE [Suspect]
     Active Substance: VALPROMIDE
     Indication: Wrong patient received product
     Dosage: 300 MILLIGRAM, 1 TOTAL
     Route: 048
     Dates: start: 20240331, end: 20240331

REACTIONS (4)
  - Loss of consciousness [Recovered/Resolved]
  - Pneumonia aspiration [Recovered/Resolved]
  - Somnolence [Recovered/Resolved]
  - Wrong patient received product [Recovered/Resolved]

NARRATIVE: CASE EVENT DATE: 20240331
